FAERS Safety Report 10151267 (Version 1)
Quarter: 2014Q2

REPORT INFORMATION
  Report Type: Spontaneous
  Country: US (occurrence: US)
  Receive Date: 20140504
  Receipt Date: 20140504
  Transmission Date: 20141212
  Serious: No
  Sender: FDA-Public Use
  Company Number: US-009507513-1404USA013086

PATIENT
  Age: 86 Year
  Sex: Female

DRUGS (2)
  1. JANUMET [Suspect]
     Indication: DIABETES MELLITUS
     Dosage: 50/1000 MG ONE PILL TWICE DAILY
     Route: 048
  2. WARFARIN [Concomitant]

REACTIONS (6)
  - Dysphagia [Not Recovered/Not Resolved]
  - Sluggishness [Not Recovered/Not Resolved]
  - Choking [Not Recovered/Not Resolved]
  - Somnolence [Not Recovered/Not Resolved]
  - Retching [Not Recovered/Not Resolved]
  - Product size issue [Unknown]
